FAERS Safety Report 7203521-1 (Version None)
Quarter: 2010Q4

REPORT INFORMATION
  Report Type: 
  Country: None (occurrence: None)
  Receive Date: 20101230
  Receipt Date: 20101223
  Transmission Date: 20110411
  Serious: Yes (Death, Hospitalization)
  Sender: FDA-Public Use
  Company Number: KR-BRISTOL-MYERS SQUIBB COMPANY-15194145

PATIENT
  Age: 66 Year
  Sex: Male
  Weight: 50 kg

DRUGS (3)
  1. CETUXIMAB [Suspect]
     Indication: HEAD AND NECK CANCER
     Dosage: RECENT INF:30JUN10,INITIAL DOSE=400MG/M2 OVER 120MIN NO OF INF:2
     Route: 042
     Dates: start: 20100531, end: 20100630
  2. CISPLATIN [Suspect]
     Indication: HEAD AND NECK CANCER
     Dosage: RECENT INF:23JUN10,75MG/M2 IV INF OVER 60 MINTS ON DAY 1,750MG/M2/DAY INF OVER 24HRS. NO OF INF:2
     Route: 042
     Dates: start: 20100531, end: 20100623
  3. FLUOROURACIL [Suspect]
     Indication: HEAD AND NECK CANCER
     Dosage: RECENT INF:27JUN10,75MG/M2 IV INF OVER 60 MINTS ON DAY 1.750MG/M2/DAY INF OVER 24HRS. NO OF INF:2
     Route: 042
     Dates: start: 20100531, end: 20100627

REACTIONS (1)
  - PNEUMONITIS [None]
